FAERS Safety Report 8337265 (Version 2)
Quarter: 2012Q4

REPORT INFORMATION
  Report Type: 
  Country: US (occurrence: US)
  Receive Date: 20120113
  Receipt Date: 20121004
  Transmission Date: 20130627
  Serious: Yes (Hospitalization, Other)
  Sender: FDA-Public Use
  Company Number: US-ABBOTT-12P-163-0891787-00

PATIENT
  Age: 58 None
  Sex: Female
  Weight: 66.28 kg

DRUGS (1)
  1. SYNTHROID 88 MCG [Suspect]
     Indication: THYROIDECTOMY
     Dates: start: 1956

REACTIONS (10)
  - Acoustic neuroma [Recovered/Resolved]
  - Hypoaesthesia [Recovered/Resolved]
  - Malaise [Recovered/Resolved]
  - Brain neoplasm [Recovered/Resolved]
  - Blood cholesterol increased [Recovered/Resolved]
  - Malaise [Recovered/Resolved]
  - Dizziness [Recovering/Resolving]
  - Nausea [Recovering/Resolving]
  - Palpitations [Recovering/Resolving]
  - Blood thyroid stimulating hormone abnormal [Unknown]
